FAERS Safety Report 17094384 (Version 3)
Quarter: 2020Q1

REPORT INFORMATION
  Report Type: Spontaneous
  Country: US (occurrence: US)
  Receive Date: 20191129
  Receipt Date: 20200316
  Transmission Date: 20200409
  Serious: Yes (Hospitalization, Other)
  Sender: FDA-Public Use
  Company Number: US-009507513-1911USA011676

PATIENT
  Age: 80 Year
  Sex: Male

DRUGS (1)
  1. TICE BCG [Suspect]
     Active Substance: BACILLUS CALMETTE-GUERIN SUBSTRAIN TICE LIVE ANTIGEN
     Indication: BLADDER CANCER
     Dosage: 16.67 MG, UNSPECIFIED FREQUENCY
     Dates: start: 20190821, end: 20190925

REACTIONS (2)
  - Critical illness [Not Recovered/Not Resolved]
  - Tuberculosis of central nervous system [Not Recovered/Not Resolved]

NARRATIVE: CASE EVENT DATE: 2019
